FAERS Safety Report 8050606-6 (Version None)
Quarter: 2012Q1

REPORT INFORMATION
  Report Type: 
  Country: None (occurrence: None)
  Receive Date: 20120117
  Receipt Date: 20120117
  Transmission Date: 20120608
  Serious: Yes (Other)
  Sender: FDA-Public Use
  Company Number: None

PATIENT
  Sex: Male
  Weight: 86.182 kg

DRUGS (1)
  1. CEFDINIR [Suspect]
     Indication: LOWER RESPIRATORY TRACT INFECTION BACTERIAL
     Dosage: 1 CAPSULE
     Route: 048
     Dates: start: 20120109, end: 20120113

REACTIONS (5)
  - DIARRHOEA [None]
  - HUNGER [None]
  - VOMITING [None]
  - ABDOMINAL DISTENSION [None]
  - LACTOSE INTOLERANCE [None]
